FAERS Safety Report 8765430 (Version 1)
Quarter: 2012Q4

REPORT INFORMATION
  Report Type: 
  Country: US (occurrence: US)
  Receive Date: 20120902
  Receipt Date: 20120902
  Transmission Date: 20130627
  Serious: Yes (Other)
  Sender: FDA-Public Use
  Company Number: US-PFIZER INC-2012215273

PATIENT
  Age: 48 Year
  Sex: Female
  Weight: 90.25 kg

DRUGS (3)
  1. EFFEXOR XR [Suspect]
     Indication: DEPRESSION
     Dosage: 75 mg, daily
  2. EFFEXOR XR [Suspect]
     Indication: ANXIETY
  3. CLONAZEPAM [Concomitant]
     Indication: ANXIETY
     Dosage: 2 mg, daily

REACTIONS (1)
  - Breast cancer [Unknown]
